FAERS Safety Report 18551865 (Version 2)
Quarter: 2020Q4

REPORT INFORMATION
  Report Type: Spontaneous
  Country: CN (occurrence: CN)
  Receive Date: 20201126
  Receipt Date: 20201130
  Transmission Date: 20210114
  Serious: Yes (Life-Threatening, Hospitalization, Other)
  Sender: FDA-Public Use
  Company Number: CN-JIANGSU HENGRUI MEDICINE CO., LTD.-2096346

PATIENT
  Age: 62 Year
  Sex: Male

DRUGS (3)
  1. DOCETAXEL INJECTION USP, 20 MG/1 ML, 80 MG/4 ML, AND 160 MG/8 ML (20 M [Suspect]
     Active Substance: DOCETAXEL
     Indication: LUNG NEOPLASM MALIGNANT
     Route: 042
     Dates: start: 20200617, end: 20200930
  2. CAMRELIZUMAB FOR INJECTION [Suspect]
     Active Substance: CAMRELIZUMAB
     Dates: start: 20200617, end: 20200930
  3. NEDAPLATIN [Suspect]
     Active Substance: NEDAPLATIN
     Route: 042
     Dates: start: 20200617, end: 20200930

REACTIONS (6)
  - Blood sodium decreased [Unknown]
  - Immune-mediated pneumonitis [Not Recovered/Not Resolved]
  - Respiratory failure [Unknown]
  - Deep vein thrombosis [Unknown]
  - Hypoproteinaemia [Unknown]
  - Pneumonia [Unknown]

NARRATIVE: CASE EVENT DATE: 20201114
